FAERS Safety Report 4803952-0 (Version None)
Quarter: 2005Q3

REPORT INFORMATION
  Report Type: 
  Country: None (occurrence: None)
  Receive Date: 20050920
  Receipt Date: 20050613
  Transmission Date: 20060218
  Serious: No
  Sender: FDA-Public Use
  Company Number: US-YAMANOUCHI-YPA20050325

PATIENT
  Age: 72 Year
  Sex: Female
  Weight: 104.3273 kg

DRUGS (6)
  1. VESICARE [Suspect]
     Indication: HYPERTONIC BLADDER
     Dosage: 5 MG QD PO
     Route: 048
     Dates: start: 20050418, end: 20050601
  2. ACTOS [Concomitant]
  3. COZAAR [Concomitant]
  4. SYNTHROID [Concomitant]
  5. MULTI-VITAMINS [Concomitant]
  6. CALCIUM WITH VITAMIN D [Concomitant]

REACTIONS (5)
  - DRY MOUTH [None]
  - HYPERAESTHESIA [None]
  - MOUTH PLAQUE [None]
  - ORAL PAIN [None]
  - STOMATITIS [None]
